FAERS Safety Report 9330530 (Version 1)
Quarter: 2013Q2

REPORT INFORMATION
  Report Type: Spontaneous
  Country: US (occurrence: None)
  Receive Date: 20130604
  Receipt Date: 20130604
  Transmission Date: 20140414
  Serious: Yes (Death)
  Sender: FDA-Public Use
  Company Number: None

PATIENT
  Age: 63 Year
  Sex: Male
  Weight: 64.5 kg

DRUGS (1)
  1. SEPHB4-HSA [Suspect]
     Indication: TONSIL CANCER
     Dosage: 5 MG/KG D1, 8, 15, 22 IV DRIP
     Dates: start: 20130103, end: 20130424

REACTIONS (4)
  - Hypertension [None]
  - Fatigue [None]
  - Face oedema [None]
  - General physical health deterioration [None]
